FAERS Safety Report 21175039 (Version 1)
Quarter: 2022Q3

REPORT INFORMATION
  Report Type: Spontaneous
  Country: IT (occurrence: IT)
  Receive Date: 20220805
  Receipt Date: 20220805
  Transmission Date: 20221027
  Serious: Yes (Other)
  Sender: FDA-Public Use
  Company Number: IT-MINISAL02-877233

PATIENT
  Age: 56 Year
  Sex: Male
  Weight: 80 kg

DRUGS (3)
  1. LAMIVUDINE [Suspect]
     Active Substance: LAMIVUDINE
     Indication: HIV test positive
     Dosage: 300 MILLIGRAM
     Route: 065
     Dates: start: 20220708
  2. ABACAVIR HYDROCHLORIDE [Suspect]
     Active Substance: ABACAVIR HYDROCHLORIDE
     Indication: HIV test positive
     Dosage: 600 MILLIGRAM
     Route: 065
     Dates: start: 20200111
  3. EMTRICITABINE\TENOFOVIR [Suspect]
     Active Substance: EMTRICITABINE\TENOFOVIR
     Indication: HIV test positive
     Dosage: 600 MILLIGRAM
     Route: 065
     Dates: start: 20220708

REACTIONS (3)
  - Hallucination [Recovering/Resolving]
  - Nightmare [Recovering/Resolving]
  - Insomnia [Recovering/Resolving]

NARRATIVE: CASE EVENT DATE: 20220520
